FAERS Safety Report 6793071-9 (Version None)
Quarter: 2010Q2

REPORT INFORMATION
  Report Type: 
  Country: None (occurrence: None)
  Receive Date: 20100624
  Receipt Date: 20081111
  Transmission Date: 20101027
  Serious: No
  Sender: FDA-Public Use
  Company Number: US-PFIZER INC-2008096261

PATIENT
  Age: 47 Year
  Sex: Female
  Weight: 63.6 kg

DRUGS (3)
  1. GEODON [Suspect]
     Indication: BIPOLAR DISORDER
     Dates: start: 20080101, end: 20081109
  2. REMERON [Concomitant]
  3. KLONOPIN [Concomitant]

REACTIONS (3)
  - HYPERHIDROSIS [None]
  - RESTLESSNESS [None]
  - TENSION [None]
